FAERS Safety Report 7080010-9 (Version None)
Quarter: 2010Q4

REPORT INFORMATION
  Report Type: 
  Country: None (occurrence: None)
  Receive Date: 20101102
  Receipt Date: 20100618
  Transmission Date: 20110411
  Serious: No
  Sender: FDA-Public Use
  Company Number: US-ABBOTT-10P-163-0653430-00

PATIENT
  Sex: Male
  Weight: 77.18 kg

DRUGS (1)
  1. BIAXIN [Suspect]
     Indication: PNEUMONIA PRIMARY ATYPICAL
     Dates: start: 20100608

REACTIONS (3)
  - ABDOMINAL PAIN UPPER [None]
  - COUGH [None]
  - DYSGEUSIA [None]
